FAERS Safety Report 5226330-1 (Version None)
Quarter: 2007Q1

REPORT INFORMATION
  Report Type: 
  Country: None (occurrence: None)
  Receive Date: 20070201
  Receipt Date: 20070131
  Transmission Date: 20070707
  Serious: Yes (Death)
  Sender: FDA-Public Use
  Company Number: US-BRISTOL-MYERS SQUIBB COMPANY-13632476

PATIENT
  Age: 77 Year
  Sex: Male

DRUGS (1)
  1. MEGACE [Suspect]
     Indication: WEIGHT DECREASED
     Route: 048
     Dates: start: 20060701

REACTIONS (1)
  - MALIGNANT NEOPLASM PROGRESSION [None]
